FAERS Safety Report 4495783-9 (Version None)
Quarter: 2004Q4

REPORT INFORMATION
  Report Type: 
  Country: None (occurrence: None)
  Receive Date: 20041104
  Receipt Date: 20041019
  Transmission Date: 20050328
  Serious: Yes (Other)
  Sender: FDA-Public Use
  Company Number: US014166

PATIENT
  Age: 24 Month
  Sex: Male

DRUGS (1)
  1. ACTIQ [Suspect]
     Dosage: 600 UG ONCE BUCCAL
     Route: 002
     Dates: start: 20041019, end: 20041019

REACTIONS (1)
  - ACCIDENTAL EXPOSURE [None]
